FAERS Safety Report 21043041 (Version 1)
Quarter: 2022Q3

REPORT INFORMATION
  Report Type: Spontaneous
  Country: US (occurrence: None)
  Receive Date: 20220702
  Receipt Date: 20220702
  Transmission Date: 20221027
  Serious: Yes (Death)
  Sender: FDA-Public Use
  Company Number: None

PATIENT
  Age: 76 Year
  Sex: Female

DRUGS (2)
  1. TAGRISSO [Suspect]
     Active Substance: OSIMERTINIB
     Indication: Neoplasm malignant
     Dosage: 1 TABLET QD PO?
     Route: 048
     Dates: start: 20210527, end: 20220627
  2. TABRECTA [Suspect]
     Active Substance: CAPMATINIB
     Indication: Neoplasm malignant
     Dosage: 2 TABLETS BID PO? ?
     Route: 048
     Dates: start: 20211229, end: 20220627

REACTIONS (1)
  - Cardiac disorder [None]

NARRATIVE: CASE EVENT DATE: 20220627
